FAERS Safety Report 5640127-X (Version None)
Quarter: 2008Q1

REPORT INFORMATION
  Report Type: 
  Country: None (occurrence: None)
  Receive Date: 20080225
  Receipt Date: 20080218
  Transmission Date: 20080703
  Serious: Yes (Life-Threatening, Hospitalization)
  Sender: FDA-Public Use
  Company Number: A0711386A

PATIENT
  Age: 73 Year
  Sex: Female
  Weight: 171.6 kg

DRUGS (3)
  1. PARNATE [Suspect]
     Indication: MAJOR DEPRESSION
     Dosage: 10 MG / ORAL
     Route: 048
     Dates: start: 20000101
  2. LITHIUM SALT [Concomitant]
  3. OLANZAPINE [Concomitant]

REACTIONS (4)
  - DRUG INEFFECTIVE [None]
  - OVERDOSE [None]
  - SUICIDE ATTEMPT [None]
  - TREMOR [None]
